FAERS Safety Report 13376934 (Version 2)
Quarter: 2017Q2

REPORT INFORMATION
  Report Type: Spontaneous
  Country: JP (occurrence: JP)
  Receive Date: 20170328
  Receipt Date: 20170421
  Transmission Date: 20170830
  Serious: Yes (Hospitalization, Other)
  Sender: FDA-Public Use
  Company Number: JP-GILEAD-2017-0258168

PATIENT
  Sex: Female

DRUGS (3)
  1. HARVONI [Suspect]
     Active Substance: LEDIPASVIR\SOFOSBUVIR
     Indication: CHRONIC HEPATITIS C
     Dosage: 1 DF, QD
     Route: 048
     Dates: start: 20160302, end: 20160524
  2. GASTER [Concomitant]
     Active Substance: FAMOTIDINE
  3. AMLODIN [Concomitant]
     Active Substance: AMLODIPINE BESYLATE

REACTIONS (1)
  - Aneurysm ruptured [Recovered/Resolved]

NARRATIVE: CASE EVENT DATE: 20170103
